FAERS Safety Report 6058695-5 (Version None)
Quarter: 2009Q1

REPORT INFORMATION
  Report Type: 
  Country: None (occurrence: None)
  Receive Date: 20090130
  Receipt Date: 20090121
  Transmission Date: 20090719
  Serious: Yes (Other)
  Sender: FDA-Public Use
  Company Number: JP-AVENTIS-200813665JP

PATIENT
  Age: 37 Year
  Sex: Male
  Weight: 63.9 kg

DRUGS (4)
  1. ENOXAPARIN SODIUM [Suspect]
     Route: 058
     Dates: start: 20081122, end: 20081124
  2. ARTIST [Concomitant]
     Route: 048
  3. LECICARBON                         /00739901/ [Concomitant]
  4. CEFAMEZIN                          /00288502/ [Concomitant]

REACTIONS (6)
  - ALANINE AMINOTRANSFERASE INCREASED [None]
  - ASPARTATE AMINOTRANSFERASE INCREASED [None]
  - GAMMA-GLUTAMYLTRANSFERASE INCREASED [None]
  - LIVER FUNCTION TEST ABNORMAL [None]
  - LIVER INJURY [None]
  - PLATELET COUNT INCREASED [None]
